FAERS Safety Report 6743056-3 (Version None)
Quarter: 2010Q2

REPORT INFORMATION
  Report Type: 
  Country: None (occurrence: None)
  Receive Date: 20100527
  Receipt Date: 20100518
  Transmission Date: 20101027
  Serious: Yes (Hospitalization)
  Sender: FDA-Public Use
  Company Number: US-JNJFOC-20100507643

PATIENT
  Sex: Female
  Weight: 65.77 kg

DRUGS (6)
  1. FENTANYL CITRATE [Suspect]
     Indication: PAIN
     Route: 062
  2. FENTANYL-100 [Suspect]
     Indication: PAIN
     Route: 062
  3. FENTANYL-100 [Suspect]
     Route: 062
  4. FENTANYL-100 [Suspect]
     Route: 062
  5. FENTANYL-100 [Suspect]
     Route: 062
  6. HYDROCODONE [Concomitant]
     Indication: PAIN
     Dosage: DOSE: 10/325 MCG
     Route: 048

REACTIONS (7)
  - DRUG EFFECT DECREASED [None]
  - FEELING ABNORMAL [None]
  - OVERDOSE [None]
  - PAIN [None]
  - PRODUCT ADHESION ISSUE [None]
  - SURGERY [None]
  - WRONG TECHNIQUE IN DRUG USAGE PROCESS [None]
